APPROVED DRUG PRODUCT: REMIFENTANIL HYDROCHLORIDE
Active Ingredient: REMIFENTANIL HYDROCHLORIDE
Strength: EQ 5MG BASE/VIAL
Dosage Form/Route: INJECTABLE;INJECTION
Application: A206223 | Product #003 | TE Code: AP
Applicant: FRESENIUS KABI USA LLC
Approved: Jan 16, 2018 | RLD: No | RS: No | Type: RX